FAERS Safety Report 7911362-2 (Version None)
Quarter: 2011Q4

REPORT INFORMATION
  Report Type: 
  Country: None (occurrence: None)
  Receive Date: 20111114
  Receipt Date: 20111109
  Transmission Date: 20120403
  Serious: Yes (Death, Life-Threatening, Hospitalization, Other)
  Sender: FDA-Public Use
  Company Number: BR-BAYER-2011-044611

PATIENT
  Age: 65 Year
  Sex: Female
  Weight: 36 kg

DRUGS (5)
  1. SORAFENIB (RAF KINASE INHIBITOR) [Suspect]
     Dosage: 200 MG, QD
     Route: 048
  2. SORAFENIB (RAF KINASE INHIBITOR) [Suspect]
     Indication: HEPATIC NEOPLASM MALIGNANT
     Dosage: 200 MG, BID
     Route: 048
     Dates: start: 20110202, end: 20110508
  3. SORAFENIB (RAF KINASE INHIBITOR) [Suspect]
     Dosage: 400 MG, BID
     Dates: start: 20110509
  4. OMEPRAZOLE [Concomitant]
     Indication: PROPHYLAXIS
     Dosage: 2 DF, QD
     Route: 048
     Dates: start: 20110503
  5. CHEMOTHERAPEUTICS NOS [Concomitant]
     Dosage: UNK
     Route: 042

REACTIONS (18)
  - HEADACHE [None]
  - CHROMATURIA [None]
  - HEPATIC NEOPLASM [None]
  - EATING DISORDER [None]
  - ASTHENIA [None]
  - CARDIAC ARREST [None]
  - NAUSEA [None]
  - MUSCLE FATIGUE [None]
  - PRURITUS [None]
  - AGEUSIA [None]
  - ALOPECIA [None]
  - DECREASED APPETITE [None]
  - COMA [None]
  - FEELING ABNORMAL [None]
  - WEIGHT DECREASED [None]
  - PAIN IN EXTREMITY [None]
  - DYSGEUSIA [None]
  - URINE ODOUR ABNORMAL [None]
